FAERS Safety Report 5117479-2 (Version None)
Quarter: 2006Q3

REPORT INFORMATION
  Report Type: 
  Country: None (occurrence: None)
  Receive Date: 20060929
  Receipt Date: 20060907
  Transmission Date: 20061208
  Serious: Yes (Hospitalization)
  Sender: FDA-Public Use
  Company Number: DE-AVENTIS-200612658DE

PATIENT
  Age: 33 Year
  Sex: Female

DRUGS (4)
  1. TAXOTERE [Suspect]
     Indication: BREAST CANCER
     Dosage: DOSE: UNKNOWN
     Route: 042
     Dates: start: 20060101
  2. NEULASTA [Suspect]
     Indication: BREAST CANCER
     Dosage: DOSE: UNKNOWN
     Route: 058
  3. DIPIDOLOR [Concomitant]
     Indication: ANALGESIC THERAPY
     Dosage: DOSE: UNKNOWN
     Route: 030
  4. DAFALGAN [Concomitant]
     Indication: ANALGESIC THERAPY
     Dosage: DOSE: UNKNOWN
     Route: 042

REACTIONS (5)
  - BLOOD LACTATE DEHYDROGENASE INCREASED [None]
  - BONE PAIN [None]
  - HAEMOGLOBIN DECREASED [None]
  - LEUKOCYTOSIS [None]
  - PYREXIA [None]
